FAERS Safety Report 8671804 (Version 5)
Quarter: 2012Q4

REPORT INFORMATION
  Report Type: 
  Country: US (occurrence: US)
  Receive Date: 20120718
  Receipt Date: 20121112
  Transmission Date: 20130627
  Serious: Yes (Other)
  Sender: FDA-Public Use
  Company Number: US-TEVA-348535USA

PATIENT
  Age: 24 None
  Sex: Female

DRUGS (3)
  1. CLARAVIS [Suspect]
     Dosage: 80 Milligram Daily;
     Dates: start: 20120221, end: 20120523
  2. ANTIBIOTICS [Concomitant]
     Dates: start: 2012
  3. ORAL CONTRACEPTIVE NOS [Concomitant]
     Dates: start: 201201, end: 20120606

REACTIONS (2)
  - Abortion spontaneous [Recovered/Resolved]
  - Unintended pregnancy [Recovered/Resolved]
